FAERS Safety Report 6063982-0 (Version None)
Quarter: 2009Q1

REPORT INFORMATION
  Report Type: 
  Country: None (occurrence: None)
  Receive Date: 20090203
  Receipt Date: 20090203
  Transmission Date: 20090719
  Serious: Yes (Other)
  Sender: FDA-Public Use
  Company Number: None

PATIENT
  Sex: Female

DRUGS (1)
  1. GENGRAF [Suspect]
     Dosage: 0.4ML IN MORNING (40MG) AND 0.45 ML (45MG) IN THE EVENING; ORAL SOLUTION
     Route: 048
     Dates: start: 20081201, end: 20081212

REACTIONS (2)
  - INCORRECT DOSE ADMINISTERED [None]
  - MEDICATION ERROR [None]
